FAERS Safety Report 15089385 (Version 1)
Quarter: 2018Q2

REPORT INFORMATION
  Report Type: Spontaneous
  Country: US (occurrence: US)
  Receive Date: 20180629
  Receipt Date: 20180629
  Transmission Date: 20180711
  Serious: No
  Sender: FDA-Public Use
  Company Number: US-TARO-2018TAR00332

PATIENT
  Sex: Female
  Weight: 69.62 kg

DRUGS (3)
  1. METRONIDAZOLE GEL USP, 1% [Suspect]
     Active Substance: METRONIDAZOLE
     Dosage: SMALL AMOUNT, MAYBE 3 TO 4 MM IN DIAMETER, 2X/DAY (EVERY MORNING AND EVERY NIGHT)
     Route: 061
     Dates: start: 201804, end: 201804
  2. METRONIDAZOLE GEL USP, 1% [Suspect]
     Active Substance: METRONIDAZOLE
     Indication: ROSACEA
     Dosage: SMALL AMOUNT, MAYBE 3 TO 4 MM IN DIAMETER, 2X/DAY (EVERY MORNING AND EVERY NIGHT)
     Route: 061
  3. METRONIDAZOLE GEL USP, 1% [Suspect]
     Active Substance: METRONIDAZOLE
     Dosage: SMALL AMOUNT, MAYBE 3 TO 4 MM IN DIAMETER, 2X/DAY (EVERY MORNING AND EVERY NIGHT)
     Route: 061
     Dates: start: 201804

REACTIONS (2)
  - Product quality issue [Recovered/Resolved]
  - Application site pain [Recovering/Resolving]

NARRATIVE: CASE EVENT DATE: 201804
